FAERS Safety Report 9815540 (Version 1)
Quarter: 2014Q1

REPORT INFORMATION
  Report Type: Spontaneous
  Country: US (occurrence: US)
  Receive Date: 20140114
  Receipt Date: 20140114
  Transmission Date: 20141002
  Serious: Yes (Death, Hospitalization)
  Sender: FDA-Public Use
  Company Number: US-JNJFOC-20140104005

PATIENT
  Age: 69 Year
  Sex: Female
  Weight: 63.5 kg

DRUGS (1)
  1. REMICADE [Suspect]
     Indication: RHEUMATOID ARTHRITIS
     Route: 042
     Dates: start: 201210, end: 20130314

REACTIONS (8)
  - Oedema peripheral [Unknown]
  - Mycobacterial infection [Fatal]
  - Abscess [Unknown]
  - Pyrexia [Unknown]
  - Abasia [Unknown]
  - Eating disorder [Unknown]
  - Incontinence [Unknown]
  - Confusional state [Unknown]
